FAERS Safety Report 12601509 (Version 1)
Quarter: 2016Q3

REPORT INFORMATION
  Report Type: Spontaneous
  Country: US (occurrence: None)
  Receive Date: 20160727
  Receipt Date: 20160727
  Transmission Date: 20161109
  Serious: Yes (Disabling)
  Sender: FDA-Public Use
  Company Number: None

PATIENT
  Age: 47 Year
  Sex: Female
  Weight: 46.72 kg

DRUGS (3)
  1. BOTOX COSMETIC [Suspect]
     Active Substance: ONABOTULINUMTOXINA
     Indication: SKIN WRINKLING
     Route: 030
     Dates: start: 20160719, end: 20160719
  2. ADVIL [Concomitant]
     Active Substance: IBUPROFEN
  3. TYLENOL [Concomitant]
     Active Substance: ACETAMINOPHEN

REACTIONS (11)
  - Palpitations [None]
  - Back pain [None]
  - Diarrhoea [None]
  - Musculoskeletal stiffness [None]
  - Influenza like illness [None]
  - Neck pain [None]
  - Dry mouth [None]
  - Myalgia [None]
  - Nausea [None]
  - Headache [None]
  - Chest pain [None]

NARRATIVE: CASE EVENT DATE: 20160719
